FAERS Safety Report 4576366-9 (Version None)
Quarter: 2005Q1

REPORT INFORMATION
  Report Type: 
  Country: None (occurrence: None)
  Receive Date: 20050207
  Receipt Date: 20050125
  Transmission Date: 20050727
  Serious: Yes (Death, Other)
  Sender: FDA-Public Use
  Company Number: 2005012299

PATIENT
  Age: 72 Year
  Sex: Female

DRUGS (13)
  1. CELEBREX [Suspect]
     Indication: OSTEOARTHRITIS
     Dosage: 400 MG (200 MG, 2 IN 1 D), ORAL
     Route: 048
  2. ACENOCOUMAROL (ACENOCOUMAROL) [Concomitant]
  3. BETAHISTINE (BETAHISTINE) [Concomitant]
  4. LOSARTAN (LOSARTAN) [Concomitant]
  5. DOXYCYCLINE [Concomitant]
  6. IRON (IRON) [Concomitant]
  7. FLUTICASONE PROPIONATE [Concomitant]
  8. MULTIVITAMINS (ASCORBIC ACID, ERGOCALCIFEROL, FOLIC ACID, NICOTINAMIDE [Concomitant]
  9. OMEPRAZOLE [Concomitant]
  10. TIOTROPIUM (TIOTROPIUM) [Concomitant]
  11. TEMAZEPAM [Concomitant]
  12. FUROSEMIDE (FUROSEMIDE) [Concomitant]
  13. FORMOTEROL (FORMOTEROL) [Concomitant]

REACTIONS (6)
  - ANAEMIA POSTOPERATIVE [None]
  - ARTHRODESIS [None]
  - CHRONIC OBSTRUCTIVE AIRWAYS DISEASE EXACERBATED [None]
  - JOINT ANKYLOSIS [None]
  - STAPHYLOCOCCAL INFECTION [None]
  - SUDDEN CARDIAC DEATH [None]
